FAERS Safety Report 4588843-5 (Version None)
Quarter: 2005Q1

REPORT INFORMATION
  Report Type: 
  Country: None (occurrence: None)
  Receive Date: 20050222
  Receipt Date: 20050201
  Transmission Date: 20050727
  Serious: Yes (Other)
  Sender: FDA-Public Use
  Company Number: CA-GLAXOSMITHKLINE-A0545099A

PATIENT
  Age: 51 Year
  Sex: Male
  Weight: 131.8 kg

DRUGS (9)
  1. AVANDIA [Suspect]
     Route: 048
  2. LITHIUM [Concomitant]
     Indication: BIPOLAR DISORDER
  3. RABEPRAZOLE SODIUM [Concomitant]
     Indication: DRUG USE FOR UNKNOWN INDICATION
  4. ASPIRIN [Concomitant]
     Indication: DRUG USE FOR UNKNOWN INDICATION
  5. TIAZAC [Concomitant]
     Indication: DRUG USE FOR UNKNOWN INDICATION
  6. TENORMIN [Concomitant]
     Indication: DRUG USE FOR UNKNOWN INDICATION
  7. RAMIPRIL [Concomitant]
     Indication: DRUG USE FOR UNKNOWN INDICATION
  8. ELTROXIN [Concomitant]
     Indication: DRUG USE FOR UNKNOWN INDICATION
  9. INDOCIN [Concomitant]
     Indication: DRUG USE FOR UNKNOWN INDICATION

REACTIONS (1)
  - BLOOD CREATININE INCREASED [None]
